FAERS Safety Report 12992787 (Version 1)
Quarter: 2016Q4

REPORT INFORMATION
  Report Type: Spontaneous
  Country: US (occurrence: US)
  Receive Date: 20161202
  Receipt Date: 20161202
  Transmission Date: 20170207
  Serious: Yes (Other)
  Sender: FDA-Public Use
  Company Number: US-BAUSCH-BL-2016-029953

PATIENT
  Age: 61 Year
  Sex: Male

DRUGS (3)
  1. AMPICILLIN [Concomitant]
     Active Substance: AMPICILLIN
     Indication: ENDOCARDITIS
  2. WARFARIN [Concomitant]
     Active Substance: WARFARIN
     Indication: ANTICOAGULANT THERAPY
  3. GENTAMICIN. [Suspect]
     Active Substance: GENTAMICIN
     Indication: ENDOCARDITIS
     Dosage: WEIGHT-BASED GENTAMICIN
     Route: 065

REACTIONS (1)
  - Acute kidney injury [Recovered/Resolved]
